FAERS Safety Report 6276355-2 (Version None)
Quarter: 2009Q3

REPORT INFORMATION
  Report Type: 
  Country: None (occurrence: None)
  Receive Date: 20090722
  Receipt Date: 20090710
  Transmission Date: 20100115
  Serious: Yes (Other)
  Sender: FDA-Public Use
  Company Number: PHHY2009GB17963

PATIENT
  Sex: Female

DRUGS (2)
  1. TEGRETOL [Suspect]
     Dosage: 200 MG, QD
     Route: 048
  2. TOPIRAMIDE [Suspect]
     Indication: STRESS CARDIOMYOPATHY
     Dosage: 100 MG, BID
     Dates: start: 20060101

REACTIONS (5)
  - DYSPNOEA [None]
  - MOOD SWINGS [None]
  - RASH [None]
  - SPEECH DISORDER [None]
  - SWELLING FACE [None]
